FAERS Safety Report 6237294-6 (Version None)
Quarter: 2009Q2

REPORT INFORMATION
  Report Type: 
  Country: None (occurrence: None)
  Receive Date: 20090619
  Receipt Date: 20090608
  Transmission Date: 20091009
  Serious: Yes (Death, Other)
  Sender: FDA-Public Use
  Company Number: GB-PFIZER INC-2009220546

PATIENT
  Age: 63 Year

DRUGS (5)
  1. GABAPENTIN [Suspect]
     Indication: NEURALGIA
  2. BUPIVACAINE HCL [Suspect]
     Indication: NEURALGIA
     Dosage: 13 ML, 1X/DAY
     Route: 008
  3. CLONIDINE [Suspect]
     Indication: NEURALGIA
     Dosage: 450 UG, UNK
     Route: 008
  4. MORPHINE HCL ELIXIR [Suspect]
     Indication: NEURALGIA
     Dosage: 60 MG, 1X/DAY
     Route: 008
  5. MORPHINE HCL ELIXIR [Suspect]
     Dosage: 10 MG, 1X/DAY
     Route: 008

REACTIONS (2)
  - DEATH [None]
  - DRUG INEFFECTIVE [None]
